FAERS Safety Report 7298553-1 (Version None)
Quarter: 2011Q1

REPORT INFORMATION
  Report Type: 
  Country: None (occurrence: None)
  Receive Date: 20110214
  Receipt Date: 20110214
  Transmission Date: 20110831
  Serious: Yes (Hospitalization, Other)
  Sender: FDA-Public Use
  Company Number: None

PATIENT
  Age: 53 Year
  Sex: Male

DRUGS (12)
  1. REVLIMID [Suspect]
     Indication: MULTIPLE MYELOMA
     Dosage: 10 MG DAILY ORALLY
     Route: 048
     Dates: start: 20101101
  2. AVELOX [Concomitant]
  3. RENVELA [Concomitant]
  4. OXYCODONE [Concomitant]
  5. AMLODIPINE [Concomitant]
  6. PROAIR HFA [Concomitant]
  7. IPRATROPIUM BROMIDE [Concomitant]
  8. VALACYCLOVIR [Concomitant]
  9. SULFAMETHOXAZOLE AND TRIMETHOPRIM [Concomitant]
  10. DETROL [Concomitant]
  11. LABETALOL HCL [Concomitant]
  12. LORAZEPAM [Concomitant]

REACTIONS (6)
  - COUGH [None]
  - BACTERIAL INFECTION [None]
  - NASAL CONGESTION [None]
  - RESPIRATORY SYNCYTIAL VIRUS TEST POSITIVE [None]
  - ASTHENIA [None]
  - NEUTROPENIA [None]
